FAERS Safety Report 8643763 (Version 2)
Quarter: 2013Q2

REPORT INFORMATION
  Report Type: Report from Study
  Country: JP (occurrence: JP)
  Receive Date: 20120629
  Receipt Date: 20130523
  Transmission Date: 20140414
  Serious: Yes (Hospitalization)
  Sender: FDA-Public Use
  Company Number: JP-ROCHE-1081741

PATIENT
  Age: 58 Year
  Sex: Male
  Weight: 49.8 kg

DRUGS (4)
  1. RIBAVIRIN [Suspect]
     Indication: CHRONIC HEPATITIS C
     Route: 048
     Dates: start: 20120517, end: 20121031
  2. BI 201335 [Suspect]
     Indication: CHRONIC HEPATITIS C
     Route: 065
     Dates: start: 20120517, end: 20121031
  3. PEGINTERFERON ALFA-2B [Suspect]
     Indication: CHRONIC HEPATITIS C
     Route: 058
     Dates: start: 20120517, end: 20121025
  4. URSO [Concomitant]
     Route: 065

REACTIONS (1)
  - Mallory-Weiss syndrome [Recovered/Resolved]
